FAERS Safety Report 8619970-0 (Version None)
Quarter: 2012Q3

REPORT INFORMATION
  Report Type: 
  Country: None (occurrence: None)
  Receive Date: 20120824
  Receipt Date: 20120815
  Transmission Date: 20120928
  Serious: Yes (Other)
  Sender: FDA-Public Use
  Company Number: GB-ELI_LILLY_AND_COMPANY-GB201208005326

PATIENT
  Age: 17 Year
  Sex: Male

DRUGS (2)
  1. PROZAC [Suspect]
     Indication: MAJOR DEPRESSION
     Dosage: 20 MG, QD
  2. PROZAC [Suspect]
     Dosage: 20 MG, BID
     Dates: start: 20120501

REACTIONS (4)
  - HALLUCINATION [None]
  - SELF INJURIOUS BEHAVIOUR [None]
  - DEPRESSED MOOD [None]
  - SUICIDAL IDEATION [None]
